FAERS Safety Report 16108085 (Version 8)
Quarter: 2020Q3

REPORT INFORMATION
  Report Type: Report from Study
  Country: US (occurrence: US)
  Receive Date: 20190322
  Receipt Date: 20200825
  Transmission Date: 20201102
  Serious: Yes (Hospitalization)
  Sender: FDA-Public Use
  Company Number: US-ACTELION-A-NJ2018-181392

PATIENT
  Age: 64 Year
  Sex: Female
  Weight: 54.42 kg

DRUGS (7)
  1. TADALAFIL. [Concomitant]
     Active Substance: TADALAFIL
  2. OPSUMIT [Suspect]
     Active Substance: MACITENTAN
     Indication: PULMONARY HYPERTENSION
     Dosage: 10 MG, QD
     Route: 048
     Dates: start: 20190117
  3. XARELTO [Concomitant]
     Active Substance: RIVAROXABAN
  4. ELIQUIS [Concomitant]
     Active Substance: APIXABAN
  5. DILTIAZEM. [Concomitant]
     Active Substance: DILTIAZEM
  6. TORSEMIDE. [Concomitant]
     Active Substance: TORSEMIDE
     Dosage: UNK
     Dates: start: 20181113
  7. ORENITRAM [Concomitant]
     Active Substance: TREPROSTINIL

REACTIONS (10)
  - Head injury [Unknown]
  - Hospitalisation [Unknown]
  - Pulmonary oedema [Recovering/Resolving]
  - Fluid retention [Not Recovered/Not Resolved]
  - Fall [Unknown]
  - Cardiac failure congestive [Recovering/Resolving]
  - Ear injury [Unknown]
  - Fluid overload [Unknown]
  - Pleural effusion [Unknown]
  - Product dose omission issue [Unknown]

NARRATIVE: CASE EVENT DATE: 20190311
